FAERS Safety Report 13958370 (Version 1)
Quarter: 2017Q3

REPORT INFORMATION
  Report Type: Spontaneous
  Country: US (occurrence: US)
  Receive Date: 20170911
  Receipt Date: 20170911
  Transmission Date: 20171128
  Serious: No
  Sender: FDA-Public Use
  Company Number: US-ROCHE-1869106

PATIENT
  Sex: Male

DRUGS (3)
  1. CISPLATIN [Concomitant]
     Indication: LUNG ADENOCARCINOMA
  2. TECENTRIQ [Suspect]
     Active Substance: ATEZOLIZUMAB
     Indication: LUNG ADENOCARCINOMA
     Route: 065
  3. GEMCITABINE [Concomitant]
     Indication: LUNG ADENOCARCINOMA

REACTIONS (2)
  - Hypothyroidism [Recovered/Resolved]
  - Fatigue [Recovered/Resolved]
